FAERS Safety Report 7044549-4 (Version None)
Quarter: 2010Q4

REPORT INFORMATION
  Report Type: 
  Country: None (occurrence: None)
  Receive Date: 20101013
  Receipt Date: 20101013
  Transmission Date: 20110411
  Serious: Yes (Hospitalization)
  Sender: FDA-Public Use
  Company Number: None

PATIENT
  Age: 57 Year
  Sex: Female
  Weight: 73.5 kg

DRUGS (2)
  1. ABRAXANE [Suspect]
     Indication: PANCREATIC CARCINOMA
     Dosage: 185 MG 3 TIMES A MONTH IV
     Route: 042
     Dates: start: 20101004
  2. VANDETANIB [Suspect]
     Indication: PANCREATIC CARCINOMA
     Dosage: 300 MG QD PO
     Route: 048
     Dates: start: 20101004

REACTIONS (3)
  - ABDOMINAL PAIN [None]
  - NAUSEA [None]
  - VOMITING [None]
